FAERS Safety Report 7213030-1 (Version None)
Quarter: 2010Q4

REPORT INFORMATION
  Report Type: 
  Country: None (occurrence: None)
  Receive Date: 20101229
  Receipt Date: 20101215
  Transmission Date: 20110411
  Serious: Yes (Hospitalization)
  Sender: FDA-Public Use
  Company Number: 024547

PATIENT
  Sex: Female

DRUGS (9)
  1. CERTOLIZUMAB PEGOL (CERTOLIZUMAB PEGOL) [Suspect]
     Indication: RHEUMATOID ARTHRITIS
     Dosage: (400 1X/2 WEEKS SUBCUTANEOUS), (400 MG 1X/4 WEEKS SUBCUTANEOUS)
     Route: 058
     Dates: start: 20090316
  2. CERTOLIZUMAB PEGOL (CERTOLIZUMAB PEGOL) [Suspect]
     Indication: RHEUMATOID ARTHRITIS
     Dosage: (400 1X/2 WEEKS SUBCUTANEOUS), (400 MG 1X/4 WEEKS SUBCUTANEOUS)
     Route: 058
     Dates: start: 20090928
  3. FOLIC ACID [Concomitant]
  4. CELECOXIB [Concomitant]
  5. METHOTREXATE [Concomitant]
  6. TROXIPIDE [Concomitant]
  7. KETOPROFEN [Concomitant]
  8. DICLOFENAC [Concomitant]
  9. AMLODIPINE BESYLATE [Concomitant]

REACTIONS (3)
  - CHOLESTEATOMA [None]
  - OTITIS MEDIA CHRONIC [None]
  - VIITH NERVE PARALYSIS [None]
